FAERS Safety Report 7511270-5 (Version None)
Quarter: 2011Q2

REPORT INFORMATION
  Report Type: 
  Country: None (occurrence: None)
  Receive Date: 20110531
  Receipt Date: 20110516
  Transmission Date: 20111010
  Serious: Yes (Other)
  Sender: FDA-Public Use
  Company Number: US-BAYER-201025561NA

PATIENT
  Age: 38 Year
  Sex: Female
  Weight: 104 kg

DRUGS (7)
  1. INTRAMUSCULAR PAIN MEDICATION [Concomitant]
     Indication: PAIN
     Dosage: UNK
     Dates: start: 20060125
  2. YASMIN [Suspect]
     Indication: ORAL CONTRACEPTION
     Dosage: UNK UNK, UNK
     Route: 048
     Dates: start: 20030101, end: 20080601
  3. PHENTERMINE [Concomitant]
  4. YASMIN [Suspect]
     Indication: MENSTRUATION IRREGULAR
     Dosage: UNK
     Dates: start: 20030101, end: 20090101
  5. DROSPIRENONE AND ETHINYL ESTRADIOL [Suspect]
     Indication: MENSTRUATION IRREGULAR
     Dosage: UNK
     Dates: start: 20030101, end: 20090101
  6. DROSPIRENONE AND ETHINYL ESTRADIOL [Suspect]
     Indication: ORAL CONTRACEPTION
     Dosage: UNK
     Dates: start: 20080601, end: 20090101
  7. LORATADINE [Concomitant]
     Dosage: 10 MG, PRN
     Route: 048

REACTIONS (8)
  - ABDOMINAL PAIN LOWER [None]
  - CHOLELITHIASIS [None]
  - RECTAL HAEMORRHAGE [None]
  - BILIARY COLIC [None]
  - CONSTIPATION [None]
  - DIARRHOEA [None]
  - ABDOMINAL PAIN UPPER [None]
  - CHOLECYSTITIS [None]
